FAERS Safety Report 15432816 (Version 3)
Quarter: 2019Q1

REPORT INFORMATION
  Report Type: Spontaneous
  Country: US (occurrence: US)
  Receive Date: 20180927
  Receipt Date: 20190317
  Transmission Date: 20190417
  Serious: No
  Sender: FDA-Public Use
  Company Number: US-JNJFOC-20180903751

PATIENT
  Age: 24 Year
  Sex: Male
  Weight: 90.72 kg

DRUGS (3)
  1. INVEGA SUSTENNA [Suspect]
     Active Substance: PALIPERIDONE PALMITATE
     Indication: SCHIZOAFFECTIVE DISORDER
     Route: 030
     Dates: start: 20181218, end: 20190129
  2. INVEGA SUSTENNA [Suspect]
     Active Substance: PALIPERIDONE PALMITATE
     Indication: SCHIZOAFFECTIVE DISORDER
     Route: 030
     Dates: start: 20180417, end: 20180417
  3. INVEGA SUSTENNA [Suspect]
     Active Substance: PALIPERIDONE PALMITATE
     Indication: SCHIZOAFFECTIVE DISORDER
     Route: 030
     Dates: start: 20180630, end: 20181121

REACTIONS (22)
  - Weight increased [Not Recovered/Not Resolved]
  - Disturbance in attention [Not Recovered/Not Resolved]
  - Migraine [Recovered/Resolved]
  - Sexual dysfunction [Not Recovered/Not Resolved]
  - Sluggishness [Not Recovered/Not Resolved]
  - General physical condition decreased [Not Recovered/Not Resolved]
  - Blood prolactin increased [Unknown]
  - Inappropriate schedule of product administration [Unknown]
  - Paraesthesia [Not Recovered/Not Resolved]
  - Erectile dysfunction [Not Recovered/Not Resolved]
  - Hypoacusis [Unknown]
  - Off label use [Unknown]
  - Hypersomnia [Not Recovered/Not Resolved]
  - Headache [Recovered/Resolved]
  - Antisocial behaviour [Unknown]
  - Thinking abnormal [Not Recovered/Not Resolved]
  - Impaired work ability [Not Recovered/Not Resolved]
  - Fatigue [Not Recovered/Not Resolved]
  - Asthenia [Not Recovered/Not Resolved]
  - Cognitive disorder [Not Recovered/Not Resolved]
  - Movement disorder [Unknown]
  - Feeling abnormal [Unknown]

NARRATIVE: CASE EVENT DATE: 2018
